FAERS Safety Report 24411493 (Version 2)
Quarter: 2024Q4

REPORT INFORMATION
  Report Type: Spontaneous
  Country: CN (occurrence: CN)
  Receive Date: 20241008
  Receipt Date: 20241016
  Transmission Date: 20250115
  Serious: Yes (Other)
  Sender: PFIZER
  Company Number: CN-PFIZER INC-PV202400129627

PATIENT
  Age: 86 Year
  Sex: Male

DRUGS (1)
  1. MEROPENEM [Suspect]
     Active Substance: MEROPENEM
     Indication: Pyelonephritis acute
     Dosage: 0.5 G, 2X/DAY (ROUTE : INJECTION IN PUMP)
     Dates: start: 20240902, end: 20240902

REACTIONS (5)
  - Abdominal pain [Recovering/Resolving]
  - Blood potassium decreased [Recovering/Resolving]
  - Dysphoria [Recovering/Resolving]
  - Hyperhidrosis [Recovering/Resolving]
  - Peripheral coldness [Recovering/Resolving]

NARRATIVE: CASE EVENT DATE: 20240902
